APPROVED DRUG PRODUCT: METAHYDRIN
Active Ingredient: TRICHLORMETHIAZIDE
Strength: 2MG
Dosage Form/Route: TABLET;ORAL
Application: N012594 | Product #001
Applicant: SANOFI AVENTIS US LLC
Approved: Jun 16, 1988 | RLD: No | RS: No | Type: DISCN